FAERS Safety Report 9536636 (Version 2)
Quarter: 2013Q3

REPORT INFORMATION
  Report Type: Report from Study
  Country: CA (occurrence: CA)
  Receive Date: 20130919
  Receipt Date: 20130919
  Transmission Date: 20140515
  Serious: Yes (Other)
  Sender: FDA-Public Use
  Company Number: CA-UCBSA-097450

PATIENT
  Age: 26 Year
  Sex: Female
  Weight: 79.4 kg

DRUGS (7)
  1. CIMZIA [Suspect]
     Indication: RHEUMATOID ARTHRITIS
     Route: 058
     Dates: start: 20130820
  2. ARAVA [Concomitant]
     Indication: RHEUMATOID ARTHRITIS
     Route: 048
     Dates: start: 200908
  3. PREDNISONE [Concomitant]
     Indication: RHEUMATOID ARTHRITIS
     Dates: start: 200908
  4. RABEPRAZOLE [Concomitant]
     Indication: PROPHYLAXIS
     Dosage: UNKNOWN DOSE
  5. CALCIUM, VIT D, IRON [Concomitant]
     Indication: VITAMIN SUPPLEMENTATION
  6. VITAMIN D [Concomitant]
  7. IRON [Concomitant]

REACTIONS (1)
  - Skin candida [Not Recovered/Not Resolved]
